FAERS Safety Report 6472566-1 (Version None)
Quarter: 2009Q4

REPORT INFORMATION
  Report Type: 
  Country: None (occurrence: None)
  Receive Date: 20091130
  Receipt Date: 20091113
  Transmission Date: 20100525
  Serious: Yes (Life-Threatening, Hospitalization, Other)
  Sender: FDA-Public Use
  Company Number: 2009-04790

PATIENT
  Age: 68 Year
  Sex: Male
  Weight: 77.1 kg

DRUGS (2)
  1. VELCADE [Suspect]
     Indication: MULTIPLE MYELOMA
     Dosage: 1.3 MG/M2, INTRAVENOUS
     Route: 042
     Dates: start: 20091102, end: 20091109
  2. DEXAMETHASONE TAB [Concomitant]

REACTIONS (8)
  - ARTERIOSCLEROSIS [None]
  - HYPOVOLAEMIC SHOCK [None]
  - OEDEMA PERIPHERAL [None]
  - ORAL CANDIDIASIS [None]
  - PERIPHERAL ISCHAEMIA [None]
  - RENAL FAILURE ACUTE [None]
  - SKIN NECROSIS [None]
  - THROMBOCYTOPENIA [None]
